FAERS Safety Report 24569800 (Version 1)
Quarter: 2024Q4

REPORT INFORMATION
  Report Type: Spontaneous
  Country: US (occurrence: US)
  Receive Date: 20241031
  Receipt Date: 20241031
  Transmission Date: 20250115
  Serious: Yes (Hospitalization, Other)
  Sender: RECKITT BENCKISER
  Company Number: US-INDIVIOR US-INDV-157137-2024

PATIENT

DRUGS (126)
  1. SUBOXONE [Suspect]
     Active Substance: BUPRENORPHINE HYDROCHLORIDE\NALOXONE HYDROCHLORIDE
     Indication: Drug withdrawal syndrome
     Dosage: 8 MILLIGRAM, (4 MG INITIAL AND 4 MG AN HOUR LATER) (DAY 01)
     Route: 060
     Dates: start: 20140618, end: 20140618
  2. SUBOXONE [Suspect]
     Active Substance: BUPRENORPHINE HYDROCHLORIDE\NALOXONE HYDROCHLORIDE
     Dosage: 4 MILLIGRAM, UNKNOWN (DAY 02)
     Route: 065
     Dates: start: 20140619, end: 20140619
  3. SUBOXONE [Suspect]
     Active Substance: BUPRENORPHINE HYDROCHLORIDE\NALOXONE HYDROCHLORIDE
     Dosage: 4 MILLIGRAM, UNKNOWN ALONG WITH SUBOXONE 2 MG FILM (DAY 03)
     Route: 065
     Dates: start: 20140620, end: 20140620
  4. SUBOXONE [Suspect]
     Active Substance: BUPRENORPHINE HYDROCHLORIDE\NALOXONE HYDROCHLORIDE
     Dosage: 8 MILLIGRAM, (4 MG INITIAL AND 4 MG AN HOUR LATER) (DAY 01) PROTOCOL IN DECEMBER 2016
     Route: 060
     Dates: start: 201612, end: 201612
  5. SUBOXONE [Suspect]
     Active Substance: BUPRENORPHINE HYDROCHLORIDE\NALOXONE HYDROCHLORIDE
     Dosage: 8 MILLIGRAM, QD (DAY 02)
     Route: 060
     Dates: start: 201612, end: 201612
  6. SUBOXONE [Suspect]
     Active Substance: BUPRENORPHINE HYDROCHLORIDE\NALOXONE HYDROCHLORIDE
     Dosage: 6 MILLIGRAM, QD (DAY 03)
     Route: 060
     Dates: start: 201612, end: 201612
  7. SUBOXONE [Suspect]
     Active Substance: BUPRENORPHINE HYDROCHLORIDE\NALOXONE HYDROCHLORIDE
     Dosage: 4 MILLIGRAM, QD (DAY 04)
     Route: 060
     Dates: start: 201612
  8. SUBOXONE [Suspect]
     Active Substance: BUPRENORPHINE HYDROCHLORIDE\NALOXONE HYDROCHLORIDE
     Dosage: 4 MILLIGRAM, PRN
     Route: 065
  9. SUBOXONE [Suspect]
     Active Substance: BUPRENORPHINE HYDROCHLORIDE\NALOXONE HYDROCHLORIDE
     Indication: Drug withdrawal syndrome
     Dosage: 2 MILLIGRAM, UNKNOWN (CONTINUED ON DAY 04 + 05 (JUNE 2014 PROTOCOL)
     Route: 065
     Dates: start: 20140618, end: 20140622
  10. SUBOXONE [Suspect]
     Active Substance: BUPRENORPHINE HYDROCHLORIDE\NALOXONE HYDROCHLORIDE
     Dosage: 2 MILLIGRAM, QD (DAY 05) (DECEMBER 2016 PROTOCOL)
     Route: 060
     Dates: start: 201612, end: 201612
  11. THIAMINE [Concomitant]
     Active Substance: THIAMINE
     Indication: Alcohol withdrawal syndrome
     Dosage: 100 MILLIGRAM, QD (VITAMIN B1)
     Route: 048
     Dates: start: 20140617
  12. FOLIC ACID [Concomitant]
     Active Substance: FOLIC ACID
     Indication: Alcohol withdrawal syndrome
     Dosage: 1 MILLIGRAM, QD (FOLATE)
     Route: 048
     Dates: start: 20140617
  13. REQUIP [Concomitant]
     Active Substance: ROPINIROLE HYDROCHLORIDE
     Indication: Restless legs syndrome
     Dosage: 0.5 MILLIGRAM, HS
     Route: 065
     Dates: start: 20140628
  14. TRAZODONE [Concomitant]
     Active Substance: TRAZODONE HYDROCHLORIDE
     Indication: Insomnia
     Dosage: 50 MILLIGRAM, HS
     Route: 065
     Dates: end: 20140807
  15. TRAZODONE [Concomitant]
     Active Substance: TRAZODONE HYDROCHLORIDE
     Dosage: 50 MILLIGRAM, QD, PRN (DESYREL)
     Route: 048
     Dates: start: 20150701, end: 20150829
  16. CLONIDINE [Concomitant]
     Active Substance: CLONIDINE
     Indication: Withdrawal syndrome
     Dosage: 0.1 MILLIGRAM, Q6H
     Route: 065
  17. CLONIDINE [Concomitant]
     Active Substance: CLONIDINE
     Dosage: 0.1 MILLIGRAM, Q6H (CATAPRES)
     Route: 048
     Dates: start: 20150701
  18. ZOLOFT [Concomitant]
     Active Substance: SERTRALINE HYDROCHLORIDE
     Indication: Post-traumatic stress disorder
     Dosage: 150 MILLIGRAM, QD
     Route: 065
  19. ZOLOFT [Concomitant]
     Active Substance: SERTRALINE HYDROCHLORIDE
     Dosage: 100 MILLIGRAM, QD
     Route: 048
     Dates: start: 20140801
  20. PRILOSEC [Concomitant]
     Active Substance: OMEPRAZOLE MAGNESIUM
     Indication: Gastrooesophageal reflux disease
     Dosage: 20 MILLIGRAM, QD
     Route: 065
     Dates: start: 1999
  21. PRILOSEC [Concomitant]
     Active Substance: OMEPRAZOLE MAGNESIUM
     Dosage: 20 MILLIGRAM, QD
     Route: 048
     Dates: start: 20140618, end: 20150830
  22. NEUROXEN [Concomitant]
     Indication: Product used for unknown indication
     Dosage: 200 MILLIGRAM, Q12H
     Route: 065
  23. FLEXERIL [Concomitant]
     Active Substance: CYCLOBENZAPRINE HYDROCHLORIDE
     Indication: Musculoskeletal stiffness
     Dosage: 10 MILLIGRAM, Q6H, PRN
     Route: 065
  24. FLEXERIL [Concomitant]
     Active Substance: CYCLOBENZAPRINE HYDROCHLORIDE
     Dosage: 10 MILLIGRAM, Q6H
     Route: 048
     Dates: start: 20150701, end: 20150702
  25. SEROQUEL [Concomitant]
     Active Substance: QUETIAPINE FUMARATE
     Indication: Sleep deficit
     Dosage: 200 MILLIGRAM, QD, HS
     Route: 048
     Dates: start: 2008
  26. SEROQUEL [Concomitant]
     Active Substance: QUETIAPINE FUMARATE
     Indication: Mood altered
     Dosage: 100 MILLIGRAM, QD
     Route: 065
     Dates: start: 2010
  27. SEROQUEL [Concomitant]
     Active Substance: QUETIAPINE FUMARATE
     Indication: Bipolar disorder
     Dosage: 150 MILLIGRAM, UNKNOWN
     Route: 048
     Dates: start: 20140617
  28. SEROQUEL [Concomitant]
     Active Substance: QUETIAPINE FUMARATE
     Dosage: 200 MILLIGRAM, QD
     Route: 048
     Dates: start: 20140625
  29. SEROQUEL [Concomitant]
     Active Substance: QUETIAPINE FUMARATE
     Dosage: 400 MILLIGRAM, UNKNOWN
     Route: 065
  30. SEROQUEL [Concomitant]
     Active Substance: QUETIAPINE FUMARATE
     Dosage: 25 MILLIGRAM, Q8H
     Route: 065
  31. SEROQUEL [Concomitant]
     Active Substance: QUETIAPINE FUMARATE
     Dosage: 25 MILLIGRAM, HS
     Route: 065
     Dates: start: 20140807
  32. SEROQUEL [Concomitant]
     Active Substance: QUETIAPINE FUMARATE
     Dosage: 100 MILLIGRAM, QD
     Route: 048
     Dates: start: 20150702, end: 20150702
  33. SEROQUEL [Concomitant]
     Active Substance: QUETIAPINE FUMARATE
     Dosage: 400 MILLIGRAM, QD
     Route: 048
     Dates: start: 20150702
  34. SEROQUEL [Concomitant]
     Active Substance: QUETIAPINE FUMARATE
     Dosage: 100 MILLIGRAM, QD
     Route: 048
     Dates: start: 20150703, end: 20150831
  35. LIBRIUM [Concomitant]
     Active Substance: CHLORDIAZEPOXIDE HYDROCHLORIDE
     Indication: Drug withdrawal syndrome
     Dosage: 50 MILLIGRAM, QID
     Route: 048
     Dates: start: 20150701, end: 20150701
  36. LIBRIUM [Concomitant]
     Active Substance: CHLORDIAZEPOXIDE HYDROCHLORIDE
     Dosage: 50 MILLIGRAM, QID (DAY 01)
     Route: 048
     Dates: start: 20140701, end: 20150702
  37. LIBRIUM [Concomitant]
     Active Substance: CHLORDIAZEPOXIDE HYDROCHLORIDE
     Dosage: 25 MILLIGRAM, QID (DAY 02)
     Route: 048
     Dates: start: 20150702, end: 20150703
  38. LIBRIUM [Concomitant]
     Active Substance: CHLORDIAZEPOXIDE HYDROCHLORIDE
     Dosage: 25 MILLIGRAM, TID (DAY 03)
     Route: 048
     Dates: start: 20150703, end: 20150704
  39. LIBRIUM [Concomitant]
     Active Substance: CHLORDIAZEPOXIDE HYDROCHLORIDE
     Dosage: 25 MILLIGRAM, BID (DAY 04)
     Route: 048
     Dates: start: 20150704, end: 20150705
  40. LIBRIUM [Concomitant]
     Active Substance: CHLORDIAZEPOXIDE HYDROCHLORIDE
     Dosage: 25 MILLIGRAM, Q2H
     Route: 048
     Dates: start: 20150701, end: 20150701
  41. LIBRIUM [Concomitant]
     Active Substance: CHLORDIAZEPOXIDE HYDROCHLORIDE
     Dosage: 50 MILLIGRAM, QID
     Route: 048
     Dates: start: 20161217, end: 20161218
  42. LIBRIUM [Concomitant]
     Active Substance: CHLORDIAZEPOXIDE HYDROCHLORIDE
     Dosage: 25 MILLIGRAM, QID
     Route: 048
     Dates: start: 20161218, end: 20161219
  43. LIBRIUM [Concomitant]
     Active Substance: CHLORDIAZEPOXIDE HYDROCHLORIDE
     Dosage: 25 MILLIGRAM, TID
     Route: 048
     Dates: start: 20161219, end: 20161220
  44. LIBRIUM [Concomitant]
     Active Substance: CHLORDIAZEPOXIDE HYDROCHLORIDE
     Dosage: 10 MILLIGRAM, Q8H
     Route: 065
     Dates: start: 201704
  45. SERAX [OXAZEPAM] [Concomitant]
     Indication: Drug withdrawal syndrome
     Dosage: 30 MILLIGRAM, QID (DAY 01)
     Route: 048
     Dates: start: 201407
  46. SERAX [OXAZEPAM] [Concomitant]
     Dosage: 20 MILLIGRAM, QID (DAY 02)
     Route: 048
     Dates: start: 201407
  47. SERAX [OXAZEPAM] [Concomitant]
     Dosage: 10 MILLIGRAM, BID (DAY 03)
     Route: 048
     Dates: start: 201407
  48. SERAX [OXAZEPAM] [Concomitant]
     Dosage: 10 MILLIGRAM, QD (DAY 04)
     Route: 048
     Dates: start: 201407
  49. SERAX [OXAZEPAM] [Concomitant]
     Dosage: 10 MILLIGRAM, QID (DAY 01)
     Route: 048
     Dates: start: 201407
  50. SERAX [OXAZEPAM] [Concomitant]
     Dosage: 10 MILLIGRAM, TID (DAY 02)
     Route: 048
     Dates: start: 201407
  51. SERAX [OXAZEPAM] [Concomitant]
     Dosage: 10 MILLIGRAM, BID (DAY 03)
     Route: 048
     Dates: start: 201407
  52. SERAX [OXAZEPAM] [Concomitant]
     Dosage: 10 MILLIGRAM, QD (DAY 04)
     Route: 048
     Dates: start: 201407
  53. SERAX [OXAZEPAM] [Concomitant]
     Dosage: 30 MILLIGRAM, Q2H
     Route: 048
     Dates: start: 201407, end: 201407
  54. BENTYL [Concomitant]
     Active Substance: DICYCLOMINE HYDROCHLORIDE
     Indication: Gastrointestinal pain
     Dosage: 20 MILLIGRAM, Q4H PRN
     Route: 048
     Dates: start: 20140703
  55. BENTYL [Concomitant]
     Active Substance: DICYCLOMINE HYDROCHLORIDE
     Dosage: 20 MILLIGRAM, Q4H
     Route: 048
     Dates: start: 20150701, end: 20150702
  56. BENTYL [Concomitant]
     Active Substance: DICYCLOMINE HYDROCHLORIDE
     Dosage: 20 MILLIGRAM, Q4H
     Route: 048
     Dates: start: 20150702
  57. IMODIUM [Concomitant]
     Active Substance: LOPERAMIDE HYDROCHLORIDE
     Indication: Diarrhoea
     Dosage: 2 MILLIGRAM, Q2H, PRN
     Route: 048
     Dates: start: 20140703
  58. IMODIUM [Concomitant]
     Active Substance: LOPERAMIDE HYDROCHLORIDE
     Dosage: 2 MILLIGRAM, Q2H
     Route: 048
     Dates: start: 20150701, end: 20150702
  59. IMODIUM [Concomitant]
     Active Substance: LOPERAMIDE HYDROCHLORIDE
     Dosage: 2 MILLIGRAM, Q2H
     Route: 048
     Dates: start: 20150702
  60. FLEXERIL [Concomitant]
     Active Substance: CYCLOBENZAPRINE HYDROCHLORIDE
     Indication: Muscle spasms
     Dosage: 10 MILLIGRAM, Q6H, PRN
     Route: 048
     Dates: start: 20140703
  61. FLEXERIL [Concomitant]
     Active Substance: CYCLOBENZAPRINE HYDROCHLORIDE
     Dosage: 10 MILLIGRAM, Q6H
     Route: 048
     Dates: start: 20150702
  62. IBUPROFEN [Concomitant]
     Active Substance: IBUPROFEN
     Indication: Pain
     Dosage: 400 MILLIGRAM, Q6H, PRN
     Route: 048
     Dates: start: 20140703
  63. NEURONTIN [Concomitant]
     Active Substance: GABAPENTIN
     Indication: Back pain
     Dosage: 300 MILLIGRAM, TID
     Route: 048
     Dates: start: 20140804, end: 20140806
  64. NORVASC [Concomitant]
     Active Substance: AMLODIPINE BESYLATE
     Indication: Hypertension
     Dosage: 10 MILLIGRAM, QD
     Route: 065
     Dates: start: 2006
  65. NORVASC [Concomitant]
     Active Substance: AMLODIPINE BESYLATE
     Dosage: 10 MILLIGRAM, QD
     Route: 048
     Dates: start: 20150702, end: 20190830
  66. THORAZINE [Concomitant]
     Active Substance: CHLORPROMAZINE
     Indication: Psychotic disorder
     Dosage: 100 MILLIGRAM, TID
     Route: 048
     Dates: start: 2014
  67. THORAZINE [Concomitant]
     Active Substance: CHLORPROMAZINE
     Indication: Post-traumatic stress disorder
  68. THORAZINE [Concomitant]
     Active Substance: CHLORPROMAZINE
     Indication: Anxiety
  69. MINIPRESS [Concomitant]
     Active Substance: PRAZOSIN HYDROCHLORIDE
     Indication: Nightmare
     Dosage: 10 MILLIGRAM, (1 CAPSULE IN MORNING AND 4 CAPSULES AT BED TIME)
     Route: 065
     Dates: start: 2013
  70. MINIPRESS [Concomitant]
     Active Substance: PRAZOSIN HYDROCHLORIDE
     Indication: Post-traumatic stress disorder
     Dosage: 4 MILLIGRAM, QD
     Route: 048
     Dates: start: 20140617, end: 20150830
  71. MINIPRESS [Concomitant]
     Active Substance: PRAZOSIN HYDROCHLORIDE
     Indication: Hypertension
     Dosage: 8 MILLIGRAM, QD
     Route: 048
     Dates: start: 20140625
  72. MINIPRESS [Concomitant]
     Active Substance: PRAZOSIN HYDROCHLORIDE
     Dosage: 2 MILLIGRAM, QD
     Route: 048
     Dates: start: 20150703
  73. MILK OF MAGNESIA [Concomitant]
     Active Substance: MAGNESIUM HYDROXIDE
     Indication: Constipation
     Dosage: 30 CC, PRN
     Route: 048
     Dates: start: 20150701, end: 20150829
  74. MAALOX ANTACID [Concomitant]
     Active Substance: ALUMINUM HYDROXIDE\DIMETHICONE\MAGNESIUM HYDROXIDE
     Indication: Dyspepsia
     Dosage: 30 CC, Q 4H, PRN
     Route: 048
     Dates: start: 20150701
  75. VISTARIL [Concomitant]
     Active Substance: HYDROXYZINE PAMOATE
     Indication: Anxiety
     Dosage: 50 MILLIGRAM, Q6H
     Route: 048
     Dates: start: 20150701
  76. VENTOLIN HFA [Concomitant]
     Active Substance: ALBUTEROL SULFATE
     Indication: Product used for unknown indication
     Dosage: 2 PUFFS
     Dates: start: 20150702, end: 20150830
  77. BUSPAR [Concomitant]
     Active Substance: BUSPIRONE HYDROCHLORIDE
     Indication: Anxiety
     Dosage: 10 MILLIGRAM, UNKNOWN
     Route: 065
  78. BUSPAR [Concomitant]
     Active Substance: BUSPIRONE HYDROCHLORIDE
     Dosage: 10 MILLIGRAM, BID
     Route: 048
  79. BUSPAR [Concomitant]
     Active Substance: BUSPIRONE HYDROCHLORIDE
     Dosage: 10 MILLIGRAM, QD
     Route: 048
     Dates: start: 20150702, end: 20150830
  80. FLOVENT HFA [Concomitant]
     Active Substance: FLUTICASONE PROPIONATE
     Indication: Asthma
     Dosage: 2 PUFFS, BID
     Dates: start: 20150702, end: 20150830
  81. LUVOX [LEVOFLOXACIN HEMIHYDRATE] [Concomitant]
     Indication: Depression
     Dosage: 150 MILLIGRAM, QD
     Route: 048
     Dates: start: 20150702
  82. LUVOX [LEVOFLOXACIN HEMIHYDRATE] [Concomitant]
     Indication: Insomnia
     Dosage: 150 MILLIGRAM, BID
     Route: 048
     Dates: start: 201612
  83. XALATAN [Concomitant]
     Active Substance: LATANOPROST
     Indication: Glaucoma
     Dosage: 1 GTT 0.005 PERCENT, QD
     Dates: start: 20150701, end: 20150829
  84. RELAFEN [Concomitant]
     Active Substance: NABUMETONE
     Indication: Pain
     Dosage: 750 MILLIGRAM, QD
     Route: 048
     Dates: start: 20150702, end: 20150702
  85. NAPROSYN [Concomitant]
     Active Substance: NAPROXEN
     Indication: Pain
     Dosage: 500 MILLIGRAM, BID
     Route: 048
     Dates: start: 20150702, end: 20150830
  86. WELLBUTRIN XL [Concomitant]
     Active Substance: BUPROPION HYDROCHLORIDE
     Indication: Bipolar disorder
     Dosage: 300 MILLIGRAM, UNKNOWN
     Route: 065
     Dates: start: 2009
  87. WELLBUTRIN XL [Concomitant]
     Active Substance: BUPROPION HYDROCHLORIDE
     Indication: Depression
     Dosage: 150 MILLIGRAM, UNKNOWN
     Route: 065
     Dates: start: 20140617
  88. COGENTIN [Concomitant]
     Active Substance: BENZTROPINE MESYLATE
     Indication: Akathisia
     Dosage: 0.5 MILLIGRAM, BID
     Route: 065
     Dates: start: 2016
  89. COGENTIN [Concomitant]
     Active Substance: BENZTROPINE MESYLATE
     Dosage: 1 MILLIGRAM, BID
     Route: 048
     Dates: start: 201612
  90. COGENTIN [Concomitant]
     Active Substance: BENZTROPINE MESYLATE
     Dosage: 0.5 MILLIGRAM, UNKNOWN
     Route: 065
  91. REMERON [Concomitant]
     Active Substance: MIRTAZAPINE
     Indication: Insomnia
     Dosage: 7.5 MILLIGRAM, QD, HS
     Route: 048
     Dates: start: 20140619
  92. REMERON [Concomitant]
     Active Substance: MIRTAZAPINE
     Dosage: 15 MILLIGRAM, QD, HS
     Route: 048
     Dates: start: 201612
  93. MOTRIN [Concomitant]
     Active Substance: IBUPROFEN
     Indication: Pain
     Dosage: 600 MILLIGRAM, PRN
     Route: 048
  94. RISPERDAL [Concomitant]
     Active Substance: RISPERIDONE
     Indication: Mood altered
     Dosage: 1 MILLIGRAM, HS
     Route: 048
     Dates: start: 20161222, end: 20161223
  95. RISPERDAL [Concomitant]
     Active Substance: RISPERIDONE
     Dosage: 2 MILLIGRAM, HS
     Route: 048
     Dates: start: 20161223, end: 20161227
  96. SINEQUAN [Concomitant]
     Active Substance: DOXEPIN HYDROCHLORIDE
     Indication: Insomnia
     Dosage: 10 MILLIGRAM, HS, PRN
     Route: 048
     Dates: start: 20161225, end: 20161227
  97. BENZTROPINE [Concomitant]
     Active Substance: BENZTROPINE
     Indication: Alcohol withdrawal syndrome
     Dosage: 0.5 MILLIGRAM, BID
     Route: 048
     Dates: start: 20161217, end: 20161218
  98. BENZTROPINE [Concomitant]
     Active Substance: BENZTROPINE
     Dosage: 1 MILLIGRAM, BID
     Route: 048
     Dates: start: 20161218, end: 20161219
  99. ATIVAN [Concomitant]
     Active Substance: LORAZEPAM
     Indication: Delirium tremens
     Dosage: 2 MILLIGRAM, QID (ADMISSION DAY)
     Route: 048
     Dates: start: 201406
  100. ATIVAN [Concomitant]
     Active Substance: LORAZEPAM
     Indication: Alcohol withdrawal syndrome
     Dosage: 2 MILLIGRAM, TID (DAY 01)
     Route: 048
     Dates: start: 201406
  101. ATIVAN [Concomitant]
     Active Substance: LORAZEPAM
     Dosage: 1 MILLIGRAM, QID (DAY 02)
     Route: 048
     Dates: start: 201406
  102. ATIVAN [Concomitant]
     Active Substance: LORAZEPAM
     Dosage: 1 MILLIGRAM, BID (DAY 03)
     Route: 048
     Dates: start: 201406
  103. ATIVAN [Concomitant]
     Active Substance: LORAZEPAM
     Dosage: 1 MILLIGRAM, QD (DAY 04)
     Route: 048
     Dates: start: 201406
  104. ATIVAN [Concomitant]
     Active Substance: LORAZEPAM
     Dosage: 1 MILLIGRAM, QD (DAY 05)
     Route: 048
     Dates: start: 201406
  105. ATIVAN [Concomitant]
     Active Substance: LORAZEPAM
     Dosage: 0.5 MILLIGRAM, Q6H
     Route: 042
     Dates: start: 201704
  106. HEPARIN [Concomitant]
     Active Substance: HEPARIN SODIUM
     Indication: Prophylaxis
     Dosage: UNK
     Route: 058
     Dates: start: 201704
  107. ZOFRAN [Concomitant]
     Active Substance: ONDANSETRON HYDROCHLORIDE
     Indication: Product used for unknown indication
     Dosage: 1 MILLIGRAM, UNKNOWN
     Route: 065
  108. ALCOHOL [Concomitant]
     Active Substance: ALCOHOL
     Indication: Product used for unknown indication
     Dosage: 2 BOTTLES OF WINE
     Route: 048
  109. NICOTINE [Concomitant]
     Active Substance: NICOTINE
     Indication: Product used for unknown indication
     Dosage: TOBACCO 3 TO 4 PACKS PER DAY
     Route: 055
  110. ENOXAPARIN SODIUM [Concomitant]
     Active Substance: ENOXAPARIN SODIUM
     Indication: Prophylaxis
     Dosage: 40 MILLIGRAM, QD
     Route: 058
     Dates: start: 20170403, end: 20170411
  111. TYLENOL [Concomitant]
     Active Substance: ACETAMINOPHEN
     Indication: Product used for unknown indication
     Dosage: 650 MILLIGRAM, Q4H
     Route: 048
     Dates: start: 20170402, end: 20170511
  112. MAGNESIUM OXIDE [Concomitant]
     Active Substance: MAGNESIUM OXIDE
     Indication: Product used for unknown indication
     Dosage: 400 MILLIGRAM, BID
     Route: 048
     Dates: start: 20140617
  113. TUBERCULIN PURIFIED PROTEIN DERIVATIVE [Concomitant]
     Active Substance: TUBERCULIN PURIFIED PROTEIN DERIVATIVE
     Indication: Product used for unknown indication
     Dosage: 0.1 MILLIGRAM, UNKNOWN
     Route: 023
     Dates: start: 20140617
  114. ZANAFLEX [Concomitant]
     Active Substance: TIZANIDINE HYDROCHLORIDE
     Indication: Muscle spasms
     Dosage: 2 MILLIGRAM, Q4H
     Route: 048
     Dates: start: 20170330
  115. TIGAN [Concomitant]
     Active Substance: TRIMETHOBENZAMIDE HYDROCHLORIDE
     Indication: Nausea
     Dosage: 300 MILLIGRAM, Q6H
     Route: 048
     Dates: start: 20170330
  116. TIGAN [Concomitant]
     Active Substance: TRIMETHOBENZAMIDE HYDROCHLORIDE
     Indication: Headache
     Dosage: 200 MILLIGRAM, Q6H
     Route: 030
     Dates: start: 20170330
  117. TIGAN [Concomitant]
     Active Substance: TRIMETHOBENZAMIDE HYDROCHLORIDE
     Indication: Pyrexia
     Dosage: 650 MILLIGRAM, Q4H
     Route: 048
     Dates: start: 2017
  118. HALDOL [Concomitant]
     Active Substance: HALOPERIDOL
     Indication: Psychotic disorder
     Dosage: 5 MILLIGRAM, Q1H
     Route: 048
     Dates: start: 20170330
  119. HALDOL [Concomitant]
     Active Substance: HALOPERIDOL
     Dosage: 5 MILLIGRAM, Q1H
     Route: 030
     Dates: start: 20170330
  120. BENADRYL [AMMONIUM CHLORIDE;DIPHENHYDRAMINE HYDROCHLORIDE;MENTHOL;SODI [Concomitant]
     Indication: Alcohol withdrawal syndrome
     Dosage: 50 MILLIGRAM, Q1H
     Route: 048
     Dates: start: 20170330
  121. BENADRYL [AMMONIUM CHLORIDE;DIPHENHYDRAMINE HYDROCHLORIDE;MENTHOL;SODI [Concomitant]
     Dosage: 50 MILLIGRAM, Q1H
     Route: 030
     Dates: start: 20170330
  122. KEPPRA [Concomitant]
     Active Substance: LEVETIRACETAM
     Indication: Seizure
     Dosage: 500 MILLIGRAM, QD
     Route: 048
     Dates: start: 20140617
  123. ESKALITH CR [Concomitant]
     Active Substance: LITHIUM CARBONATE
     Indication: Mood altered
     Dosage: 450 MILLIGRAM, QD
     Route: 048
     Dates: start: 20140620
  124. VITAMINS NOS [Concomitant]
     Active Substance: VITAMINS
     Indication: Product used for unknown indication
     Dosage: UNK, QD
     Route: 048
     Dates: start: 20140617
  125. VIIBRYD [Concomitant]
     Active Substance: VILAZODONE HYDROCHLORIDE
     Indication: Product used for unknown indication
     Dosage: 40 MILLIGRAM, QD
     Route: 048
     Dates: start: 20140618
  126. SODIUM CHLORIDE [Concomitant]
     Active Substance: SODIUM CHLORIDE
     Indication: Product used for unknown indication
     Dosage: UNK
     Route: 042
     Dates: start: 20170403, end: 20170404

REACTIONS (8)
  - Drug detoxification [Unknown]
  - Respiratory failure [Recovered/Resolved]
  - Weight decreased [Unknown]
  - Tooth erosion [Unknown]
  - Dental caries [Unknown]
  - Hypotension [Unknown]
  - Urinary incontinence [Unknown]
  - Drug abuse [Unknown]

NARRATIVE: CASE EVENT DATE: 20140101
